FAERS Safety Report 23833308 (Version 1)
Quarter: 2024Q2

REPORT INFORMATION
  Report Type: Spontaneous
  Country: US (occurrence: US)
  Receive Date: 20240508
  Receipt Date: 20240508
  Transmission Date: 20240716
  Serious: No
  Sender: FDA-Public Use
  Company Number: US-INCYTE CORPORATION-2024IN004149

PATIENT

DRUGS (1)
  1. OPZELURA [Suspect]
     Active Substance: RUXOLITINIB PHOSPHATE
     Indication: Vitiligo
     Dosage: ONCE DAILY VERSUS TWICE A DAY AS THE PRESCRIPTION IS WRITTEN
     Route: 065

REACTIONS (2)
  - Drug ineffective [Unknown]
  - Intentional product use issue [Unknown]
